FAERS Safety Report 5283920-8 (Version None)
Quarter: 2007Q1

REPORT INFORMATION
  Report Type: 
  Country: None (occurrence: None)
  Receive Date: 20070327
  Receipt Date: 20070314
  Transmission Date: 20070707
  Serious: Yes (Hospitalization)
  Sender: FDA-Public Use
  Company Number: 2006-151293-NL

PATIENT
  Age: 45 Year
  Sex: Female
  Weight: 69.9 kg

DRUGS (1)
  1. NUVARING [Suspect]

REACTIONS (2)
  - CEREBRAL THROMBOSIS [None]
  - HAEMORRHAGE INTRACRANIAL [None]
